FAERS Safety Report 18325720 (Version 1)
Quarter: 2020Q3

REPORT INFORMATION
  Report Type: Spontaneous
  Country: FR (occurrence: FR)
  Receive Date: 20200929
  Receipt Date: 20200929
  Transmission Date: 20201103
  Serious: Yes (Other)
  Sender: FDA-Public Use
  Company Number: FR-PFIZER INC-2020375029

PATIENT
  Age: 39 Year
  Sex: Female

DRUGS (2)
  1. TERCIAN [CYAMEMAZINE] [Interacting]
     Active Substance: CYAMEMAZINE
     Indication: PSYCHIATRIC SYMPTOM
     Dosage: 100 MILLIGRAM, QD
     Route: 048
     Dates: start: 20200528
  2. PANTOPRAZOLE [Suspect]
     Active Substance: PANTOPRAZOLE
     Indication: ABDOMINAL PAIN UPPER
     Dosage: 40 MILLIGRAM, QD
     Route: 048
     Dates: start: 20200529, end: 20200607

REACTIONS (3)
  - Vomiting [Recovered/Resolved]
  - Hyponatraemia [Recovered/Resolved]
  - Drug interaction [Unknown]

NARRATIVE: CASE EVENT DATE: 202006
